FAERS Safety Report 16641842 (Version 1)
Quarter: 2019Q3

REPORT INFORMATION
  Report Type: Report from Study
  Country: DE (occurrence: DE)
  Receive Date: 20190729
  Receipt Date: 20190729
  Transmission Date: 20191004
  Serious: Yes (Hospitalization)
  Sender: FDA-Public Use
  Company Number: DE-ROCHE-2360074

PATIENT
  Age: 32 Year
  Sex: Male

DRUGS (45)
  1. REMICADE [Concomitant]
     Active Substance: INFLIXIMAB
     Route: 065
     Dates: start: 201008
  2. REMICADE [Concomitant]
     Active Substance: INFLIXIMAB
     Route: 065
     Dates: start: 201302
  3. METHOTREXATE. [Concomitant]
     Active Substance: METHOTREXATE
     Route: 065
  4. METHOTREXATE. [Concomitant]
     Active Substance: METHOTREXATE
     Route: 065
  5. METHOTREXATE. [Concomitant]
     Active Substance: METHOTREXATE
     Route: 065
     Dates: start: 201301
  6. METHOTREXATE. [Concomitant]
     Active Substance: METHOTREXATE
     Route: 058
  7. HUMIRA [Concomitant]
     Active Substance: ADALIMUMAB
     Route: 065
  8. HUMIRA [Concomitant]
     Active Substance: ADALIMUMAB
     Route: 065
  9. TOCILIZUMAB. [Suspect]
     Active Substance: TOCILIZUMAB
     Route: 058
  10. REMICADE [Concomitant]
     Active Substance: INFLIXIMAB
     Route: 065
     Dates: start: 200907
  11. REMICADE [Concomitant]
     Active Substance: INFLIXIMAB
     Route: 065
     Dates: start: 201301
  12. REMICADE [Concomitant]
     Active Substance: INFLIXIMAB
     Route: 065
     Dates: start: 201302, end: 201508
  13. METHOTREXATE. [Concomitant]
     Active Substance: METHOTREXATE
     Route: 065
  14. METHOTREXATE. [Concomitant]
     Active Substance: METHOTREXATE
     Route: 058
  15. METHOTREXATE. [Concomitant]
     Active Substance: METHOTREXATE
     Route: 058
  16. METHOTREXATE. [Concomitant]
     Active Substance: METHOTREXATE
     Route: 058
  17. HUMIRA [Concomitant]
     Active Substance: ADALIMUMAB
     Route: 065
  18. TOCILIZUMAB. [Suspect]
     Active Substance: TOCILIZUMAB
     Indication: JUVENILE IDIOPATHIC ARTHRITIS
     Route: 058
     Dates: start: 201801
  19. METHOTREXATE. [Concomitant]
     Active Substance: METHOTREXATE
     Route: 058
  20. HUMIRA [Concomitant]
     Active Substance: ADALIMUMAB
     Route: 065
  21. HUMIRA [Concomitant]
     Active Substance: ADALIMUMAB
     Route: 065
     Dates: start: 201508, end: 201801
  22. CYCLOSPORIN A [Suspect]
     Active Substance: CYCLOSPORINE
     Route: 065
  23. REMICADE [Concomitant]
     Active Substance: INFLIXIMAB
     Route: 065
  24. REMICADE [Concomitant]
     Active Substance: INFLIXIMAB
     Route: 065
  25. METHOTREXATE. [Concomitant]
     Active Substance: METHOTREXATE
     Route: 065
     Dates: start: 201310, end: 201806
  26. TOCILIZUMAB. [Suspect]
     Active Substance: TOCILIZUMAB
     Route: 058
     Dates: start: 201801, end: 201811
  27. REMICADE [Concomitant]
     Active Substance: INFLIXIMAB
     Route: 065
     Dates: start: 201109
  28. REMICADE [Concomitant]
     Active Substance: INFLIXIMAB
     Route: 065
  29. METHOTREXATE. [Concomitant]
     Active Substance: METHOTREXATE
     Route: 065
  30. METHOTREXATE. [Concomitant]
     Active Substance: METHOTREXATE
     Route: 065
  31. METHOTREXATE. [Concomitant]
     Active Substance: METHOTREXATE
     Route: 065
  32. PREDNISOLONE. [Concomitant]
     Active Substance: PREDNISOLONE
  33. REMICADE [Concomitant]
     Active Substance: INFLIXIMAB
     Route: 065
     Dates: start: 200703
  34. REMICADE [Concomitant]
     Active Substance: INFLIXIMAB
     Route: 065
  35. METHOTREXATE. [Concomitant]
     Active Substance: METHOTREXATE
     Route: 065
  36. CYCLOSPORIN A [Suspect]
     Active Substance: CYCLOSPORINE
     Indication: PRODUCT USED FOR UNKNOWN INDICATION
     Route: 065
     Dates: start: 201806
  37. REMICADE [Concomitant]
     Active Substance: INFLIXIMAB
     Route: 065
  38. METHOTREXATE. [Concomitant]
     Active Substance: METHOTREXATE
     Route: 065
     Dates: start: 200805
  39. METHOTREXATE. [Concomitant]
     Active Substance: METHOTREXATE
     Route: 058
  40. HUMIRA [Concomitant]
     Active Substance: ADALIMUMAB
     Route: 065
     Dates: start: 201508
  41. REMICADE [Concomitant]
     Active Substance: INFLIXIMAB
     Route: 065
  42. METHOTREXATE. [Concomitant]
     Active Substance: METHOTREXATE
     Route: 065
  43. METHOTREXATE. [Concomitant]
     Active Substance: METHOTREXATE
     Route: 058
  44. METHOTREXATE. [Concomitant]
     Active Substance: METHOTREXATE
     Route: 058
  45. METHOTREXATE. [Concomitant]
     Active Substance: METHOTREXATE
     Route: 058

REACTIONS (1)
  - Mechanical ileus [Recovered/Resolved]

NARRATIVE: CASE EVENT DATE: 20181107
